FAERS Safety Report 23695296 (Version 1)
Quarter: 2024Q2

REPORT INFORMATION
  Report Type: Spontaneous
  Country: ES (occurrence: ES)
  Receive Date: 20240402
  Receipt Date: 20240402
  Transmission Date: 20240715
  Serious: Yes (Other)
  Sender: FDA-Public Use
  Company Number: ES-TWI PHARMACEUTICAL, INC-2024SCTW000050

PATIENT

DRUGS (13)
  1. FORFIVO XL [Suspect]
     Active Substance: BUPROPION HYDROCHLORIDE
     Indication: Major depression
     Dosage: UNK
     Route: 065
  2. FORFIVO XL [Suspect]
     Active Substance: BUPROPION HYDROCHLORIDE
     Indication: Apathy
  3. FORFIVO XL [Suspect]
     Active Substance: BUPROPION HYDROCHLORIDE
     Indication: Psychomotor retardation
  4. TOPIRAMATE [Concomitant]
     Active Substance: TOPIRAMATE
     Indication: Autism spectrum disorder
     Dosage: UNK
     Route: 065
  5. TOPIRAMATE [Concomitant]
     Active Substance: TOPIRAMATE
     Indication: Obsessive-compulsive disorder
  6. FLUVOXAMINE [Concomitant]
     Active Substance: FLUVOXAMINE
     Indication: Autism spectrum disorder
     Dosage: UNK
     Route: 065
  7. FLUVOXAMINE [Concomitant]
     Active Substance: FLUVOXAMINE
     Indication: Obsessive-compulsive disorder
  8. VALPROIC ACID [Concomitant]
     Active Substance: VALPROIC ACID
     Indication: Autism spectrum disorder
     Dosage: UNK
     Route: 065
  9. VALPROIC ACID [Concomitant]
     Active Substance: VALPROIC ACID
     Indication: Obsessive-compulsive disorder
  10. RISPERIDONE [Concomitant]
     Active Substance: RISPERIDONE
     Indication: Autism spectrum disorder
     Dosage: UNK
     Route: 065
  11. RISPERIDONE [Concomitant]
     Active Substance: RISPERIDONE
     Indication: Obsessive-compulsive disorder
  12. CLONAZEPAM [Concomitant]
     Active Substance: CLONAZEPAM
     Indication: Autism spectrum disorder
     Dosage: UNK
     Route: 065
  13. CLONAZEPAM [Concomitant]
     Active Substance: CLONAZEPAM
     Indication: Obsessive-compulsive disorder

REACTIONS (2)
  - Tourette^s disorder [Unknown]
  - Coprolalia [Recovered/Resolved]
